FAERS Safety Report 4306830-9 (Version None)
Quarter: 2004Q1

REPORT INFORMATION
  Report Type: 
  Country: None (occurrence: None)
  Receive Date: 20040225
  Receipt Date: 20040209
  Transmission Date: 20041129
  Serious: Yes (Hospitalization, Other)
  Sender: FDA-Public Use
  Company Number: GBS040214414

PATIENT
  Age: 59 Year
  Sex: Male
  Weight: 70 kg

DRUGS (3)
  1. OLANZAPINE [Suspect]
     Indication: AGITATION
     Dosage: 10 MG
     Dates: start: 20031203
  2. OLANZAPINE [Suspect]
     Indication: PSYCHOTIC DISORDER
     Dosage: 10 MG
     Dates: start: 20031203
  3. VENLAFAXINE HCL [Concomitant]

REACTIONS (1)
  - MANIA [None]
